FAERS Safety Report 5482228-5 (Version None)
Quarter: 2007Q4

REPORT INFORMATION
  Report Type: 
  Country: None (occurrence: None)
  Receive Date: 20071011
  Receipt Date: 20071009
  Transmission Date: 20080405
  Serious: Yes (Hospitalization)
  Sender: FDA-Public Use
  Company Number: US-BRISTOL-MYERS SQUIBB COMPANY-13935275

PATIENT
  Age: 47 Year
  Sex: Male
  Weight: 62 kg

DRUGS (4)
  1. CETUXIMAB [Suspect]
     Indication: NEOPLASM MALIGNANT
     Dosage: 450 MG/M2 ON 5/18/2007.
     Dates: start: 20070914, end: 20070914
  2. TAXOL [Suspect]
     Indication: NEOPLASM MALIGNANT
     Dosage: TAXOL 20 MG/M2(DOSE REDUCED FOR HEMATOLOGIC TOXICITY)7/9/07,7/16/07,7/23/07
     Dates: start: 20070730, end: 20070730
  3. CARBOPLATIN [Suspect]
     Indication: NEOPLASM MALIGNANT
     Dosage: CARBOPLATIN AUC0.50(DOSE REDUCED TO HEMATOLOGIC TOXICITY)7/9/07,7/16/07,7/23/07
     Dates: start: 20070730, end: 20070730
  4. RADIATION THERAPY [Suspect]
     Indication: NEOPLASM MALIGNANT
     Dosage: 1 DOSAGE FORM = 7020 GY
     Dates: start: 20070611, end: 20070808

REACTIONS (3)
  - EPIGLOTTIC ERYTHEMA [None]
  - EPIGLOTTIC OEDEMA [None]
  - HAEMATOTOXICITY [None]
